FAERS Safety Report 20668294 (Version 1)
Quarter: 2022Q2

REPORT INFORMATION
  Report Type: Other
  Country: JP (occurrence: None)
  Receive Date: 20220404
  Receipt Date: 20220404
  Transmission Date: 20220721
  Serious: Yes (Other)
  Sender: FDA-Public Use
  Company Number: JP-ROCHE-3066824

PATIENT
  Age: 53 Year
  Sex: Female

DRUGS (10)
  1. BEVACIZUMAB [Suspect]
     Active Substance: BEVACIZUMAB
     Indication: Squamous cell carcinoma
     Route: 065
  2. CISPLATIN [Suspect]
     Active Substance: CISPLATIN
     Indication: Squamous cell carcinoma
     Dosage: 20 ~ 37.5 MG/M2
     Route: 065
  3. PACLITAXEL [Suspect]
     Active Substance: PACLITAXEL
     Indication: Squamous cell carcinoma
     Route: 065
  4. PACLITAXEL [Suspect]
     Active Substance: PACLITAXEL
     Route: 065
  5. TOPOTECAN [Suspect]
     Active Substance: TOPOTECAN HYDROCHLORIDE
     Indication: Squamous cell carcinoma
     Route: 065
  6. CARBOPLATIN [Concomitant]
     Active Substance: CARBOPLATIN
  7. IRINOTECAN [Concomitant]
     Active Substance: IRINOTECAN
  8. CISPLATIN [Concomitant]
     Active Substance: CISPLATIN
  9. IFOSFAMIDE [Concomitant]
     Active Substance: IFOSFAMIDE
  10. NEDAPLATIN [Concomitant]
     Active Substance: NEDAPLATIN

REACTIONS (3)
  - Disease progression [Unknown]
  - Neutropenia [Unknown]
  - Proteinuria [Unknown]
